FAERS Safety Report 16865231 (Version 3)
Quarter: 2020Q1

REPORT INFORMATION
  Report Type: Report from Study
  Country: US (occurrence: US)
  Receive Date: 20190930
  Receipt Date: 20200306
  Transmission Date: 20200409
  Serious: No
  Sender: FDA-Public Use
  Company Number: US-SA-2016SA167497

PATIENT
  Age: 40 Year
  Sex: Female

DRUGS (1)
  1. ALEMTUZUMAB [Suspect]
     Active Substance: ALEMTUZUMAB
     Indication: MULTIPLE SCLEROSIS
     Dosage: 12 MG,QD
     Route: 041
     Dates: start: 20160829, end: 20160902

REACTIONS (9)
  - Psychotic disorder [Unknown]
  - Tongue ulceration [Unknown]
  - Infective glossitis [Unknown]
  - Fatigue [Unknown]
  - Oral pain [Unknown]
  - Overdose [Unknown]
  - Rash [Recovered/Resolved]
  - Drug ineffective [Unknown]
  - Feeding disorder [Unknown]

NARRATIVE: CASE EVENT DATE: 2016
